FAERS Safety Report 4905495-2 (Version None)
Quarter: 2006Q1

REPORT INFORMATION
  Report Type: 
  Country: None (occurrence: None)
  Receive Date: 20060208
  Receipt Date: 20060130
  Transmission Date: 20060701
  Serious: Yes (Other)
  Sender: FDA-Public Use
  Company Number: PL-BRISTOL-MYERS SQUIBB COMPANY-13263561

PATIENT
  Age: 56 Year
  Weight: 80 kg

DRUGS (8)
  1. PACLITAXEL [Suspect]
     Indication: BLADDER CANCER
     Dates: start: 20030811, end: 20030811
  2. CISPLATIN [Suspect]
     Indication: BLADDER CANCER
     Dates: start: 20030802, end: 20030802
  3. GEMCITABINE [Suspect]
     Indication: BLADDER CANCER
     Dates: start: 20030811, end: 20030811
  4. FRAXIPARINE [Concomitant]
     Dates: start: 20030711
  5. ONDANSETRON [Concomitant]
     Dates: start: 20030509
  6. TRAMADOL HCL [Concomitant]
     Dates: start: 20030101
  7. RANITIDINE HCL [Concomitant]
     Dates: start: 20030101
  8. METOCLOPRAMIDE HCL [Concomitant]
     Dates: start: 20030701

REACTIONS (1)
  - THROMBOSIS [None]
